FAERS Safety Report 19771183 (Version 2)
Quarter: 2021Q3

REPORT INFORMATION
  Report Type: Spontaneous
  Country: CL (occurrence: CL)
  Receive Date: 20210831
  Receipt Date: 20210831
  Transmission Date: 20211014
  Serious: Yes (Hospitalization)
  Sender: FDA-Public Use
  Company Number: CL-WEST THERAPEUTIC DEVELOPMENT-2021WTD00015

PATIENT
  Sex: Male

DRUGS (4)
  1. MIDAZOLAM. [Concomitant]
     Active Substance: MIDAZOLAM
     Dosage: MATERNAL DOSE OF 0.3 MCG/KG/H
     Route: 064
  2. PROPOFOL. [Concomitant]
     Active Substance: PROPOFOL
     Dosage: MATERNAL DOSE 3.5 MCG/KG/H
     Route: 064
  3. DEXMEDETOMIDINE. [Concomitant]
     Active Substance: DEXMEDETOMIDINE
     Dosage: 1 MCG/KG/H
     Route: 064
  4. FENTANYL. [Suspect]
     Active Substance: FENTANYL
     Dosage: MATERNAL DOSE WAS 2 MCG/KG/H
     Route: 064

REACTIONS (2)
  - Drug withdrawal syndrome neonatal [Recovered/Resolved]
  - Urinary bladder rupture [Recovered/Resolved]
